FAERS Safety Report 15945482 (Version 1)
Quarter: 2019Q1

REPORT INFORMATION
  Report Type: Spontaneous
  Country: US (occurrence: US)
  Receive Date: 20190121
  Receipt Date: 20190121
  Transmission Date: 20190417
  Serious: No
  Sender: FDA-Public Use
  Company Number: None

PATIENT
  Sex: Female

DRUGS (1)
  1. HYDROXYPROGEST CARP SDV [Suspect]
     Active Substance: HYDROXYPROGESTERONE CAPROATE
     Indication: TONSIL CANCER
     Route: 030
     Dates: start: 20181010

REACTIONS (3)
  - Musculoskeletal stiffness [None]
  - Injection site swelling [None]
  - Injection site pruritus [None]
